FAERS Safety Report 7537565-7 (Version None)
Quarter: 2011Q2

REPORT INFORMATION
  Report Type: 
  Country: None (occurrence: None)
  Receive Date: 20110609
  Receipt Date: 20070604
  Transmission Date: 20111010
  Serious: Yes (Death)
  Sender: FDA-Public Use
  Company Number: PHMT2007CA01339

PATIENT
  Sex: Male

DRUGS (3)
  1. CLOZAPINE [Suspect]
     Dates: start: 20041007, end: 20070523
  2. CLOZAPINE [Suspect]
     Dates: start: 20070524, end: 20070604
  3. CLOZAPINE [Suspect]
     Dates: start: 19920708, end: 20041006

REACTIONS (1)
  - DEATH [None]
